FAERS Safety Report 10626987 (Version 4)
Quarter: 2015Q1

REPORT INFORMATION
  Report Type: Spontaneous
  Country: AU (occurrence: AU)
  Receive Date: 20141204
  Receipt Date: 20150302
  Transmission Date: 20150720
  Serious: Yes (Death, Life-Threatening, Disabling, Other)
  Sender: FDA-Public Use
  Company Number: AU-009507513-1411AUS013423

PATIENT
  Age: 14 Year
  Sex: Male
  Weight: 50 kg

DRUGS (5)
  1. ALBUTEROL. [Concomitant]
     Active Substance: ALBUTEROL
     Dosage: UNK, PRN
  2. NITROUS OXIDE. [Suspect]
     Active Substance: NITROUS OXIDE
     Indication: ANAESTHESIA
     Dosage: UNK
     Route: 055
     Dates: start: 20141121
  3. FENTANYL. [Suspect]
     Active Substance: FENTANYL
     Dosage: 50 MICROGRAM, UNK
     Dates: start: 20141121
  4. ESMERON [Suspect]
     Active Substance: ROCURONIUM BROMIDE
     Dosage: 30 MG, UNK
     Route: 042
     Dates: start: 20141121
  5. SEVOFLURANE. [Suspect]
     Active Substance: SEVOFLURANE
     Indication: ANAESTHESIA
     Dosage: UNK
     Route: 055
     Dates: start: 20141121

REACTIONS (1)
  - Anaphylactic reaction [Fatal]

NARRATIVE: CASE EVENT DATE: 20141121
